FAERS Safety Report 10545171 (Version 1)
Quarter: 2014Q4

REPORT INFORMATION
  Report Type: Spontaneous
  Country: US (occurrence: US)
  Receive Date: 20141027
  Receipt Date: 20141027
  Transmission Date: 20150529
  Serious: No
  Sender: FDA-Public Use
  Company Number: US-ELI_LILLY_AND_COMPANY-US201409010323

PATIENT
  Sex: Female
  Weight: 126.98 kg

DRUGS (3)
  1. CELEBREX [Suspect]
     Active Substance: CELECOXIB
     Indication: ARTHRITIS
     Dosage: 200 MG, BID
     Route: 048
  2. CYMBALTA [Suspect]
     Active Substance: DULOXETINE HYDROCHLORIDE
     Indication: FIBROMYALGIA
     Dosage: UNK, UNKNOWN
     Route: 065
  3. OXYBUTYNIN [Concomitant]
     Active Substance: OXYBUTYNIN

REACTIONS (6)
  - Arthritis [Unknown]
  - Abasia [Unknown]
  - Feeling abnormal [Unknown]
  - Rheumatoid arthritis [Unknown]
  - Glucose tolerance impaired [Unknown]
  - Nodule [Unknown]
